FAERS Safety Report 18611152 (Version 2)
Quarter: 2021Q1

REPORT INFORMATION
  Report Type: Spontaneous
  Country: JP (occurrence: JP)
  Receive Date: 20201214
  Receipt Date: 20210113
  Transmission Date: 20210419
  Serious: Yes (Other)
  Sender: FDA-Public Use
  Company Number: JP-MYLANLABS-2020M1099183

PATIENT
  Age: 86 Year
  Sex: Male
  Weight: 56.1 kg

DRUGS (7)
  1. ELIQUIS [Suspect]
     Active Substance: APIXABAN
     Indication: CEREBROVASCULAR ACCIDENT PROPHYLAXIS
     Dosage: 2.5 MILLIGRAM, BID
     Route: 048
     Dates: start: 20160511, end: 20201002
  2. CILOSTAZOL. [Suspect]
     Active Substance: CILOSTAZOL
     Indication: CEREBROVASCULAR ACCIDENT PROPHYLAXIS
     Dosage: 100 MILLIGRAM, BID
     Route: 048
     Dates: end: 20201002
  3. ROZEREM [Concomitant]
     Active Substance: RAMELTEON
     Indication: INSOMNIA
     Dosage: 8 MILLIGRAM, QD
     Route: 048
     Dates: start: 20191226
  4. TAMSULOSIN HYDROCHLORIDE. [Concomitant]
     Active Substance: TAMSULOSIN HYDROCHLORIDE
     Indication: BENIGN PROSTATIC HYPERPLASIA
     Dosage: 0.2 MILLIGRAM, QD
     Route: 048
  5. FEXOFENADINE [Concomitant]
     Active Substance: FEXOFENADINE HYDROCHLORIDE
     Indication: PRURITUS
     Dosage: 60 MILLIGRAM, BID
     Route: 048
  6. CILOSTAZOL. [Suspect]
     Active Substance: CILOSTAZOL
     Dosage: UNK
     Route: 048
     Dates: start: 20201010
  7. ELIQUIS [Suspect]
     Active Substance: APIXABAN
     Indication: THROMBOSIS PROPHYLAXIS
     Dosage: UNK
     Route: 048
     Dates: start: 20201010

REACTIONS (3)
  - Diverticulum intestinal [Unknown]
  - Haematochezia [Recovered/Resolved]
  - Diverticulum intestinal haemorrhagic [Recovered/Resolved]

NARRATIVE: CASE EVENT DATE: 20201002
